FAERS Safety Report 8120685-6 (Version None)
Quarter: 2012Q1

REPORT INFORMATION
  Report Type: 
  Country: None (occurrence: None)
  Receive Date: 20120207
  Receipt Date: 20120125
  Transmission Date: 20120608
  Serious: Yes (Other)
  Sender: FDA-Public Use
  Company Number: CA-ROCHE-GNE323731

PATIENT
  Sex: Male

DRUGS (1)
  1. XOLAIR [Suspect]
     Indication: ASTHMA
     Dosage: 225 MG, Q2W
     Route: 058
     Dates: start: 20060308

REACTIONS (10)
  - RENAL DISORDER [None]
  - WEIGHT DECREASED [None]
  - ABDOMINAL PAIN [None]
  - PAIN IN EXTREMITY [None]
  - LACRIMATION INCREASED [None]
  - URINARY RETENTION [None]
  - ABDOMINAL DISCOMFORT [None]
  - LYMPHADENOPATHY [None]
  - BACK PAIN [None]
  - GLUCOSE TOLERANCE IMPAIRED [None]
